FAERS Safety Report 22629646 (Version 2)
Quarter: 2023Q2

REPORT INFORMATION
  Report Type: Spontaneous
  Country: JP (occurrence: JP)
  Receive Date: 20230622
  Receipt Date: 20230628
  Transmission Date: 20230721
  Serious: Yes (Other)
  Sender: FDA-Public Use
  Company Number: JP-PFIZER INC-PV202300095374

PATIENT
  Age: 6 Decade
  Sex: Female
  Weight: 42 kg

DRUGS (13)
  1. IBRANCE [Suspect]
     Active Substance: PALBOCICLIB
     Indication: Breast cancer recurrent
     Dosage: 1X/DAY; 2 WEEKS ON/1 WEEK OFF SCHEDULE
     Route: 048
     Dates: start: 20220323
  2. IBRANCE [Suspect]
     Active Substance: PALBOCICLIB
     Dosage: 1X/DAY; 2 WEEKS ON/1 WEEK OFF SCHEDULE
     Route: 048
     Dates: start: 20220406
  3. EXEMESTANE [Suspect]
     Active Substance: EXEMESTANE
     Indication: Breast cancer recurrent
     Dosage: UNK
     Dates: start: 20220323
  4. EXEMESTANE [Suspect]
     Active Substance: EXEMESTANE
     Dosage: UNK
     Dates: start: 20220406
  5. ELTROMBOPAG OLAMINE [Concomitant]
     Active Substance: ELTROMBOPAG OLAMINE
     Indication: Immune thrombocytopenia
     Dosage: 12.5 MG, 2X/DAY
     Route: 048
     Dates: start: 2020
  6. RABEPRAZOLE SODIUM [Concomitant]
     Active Substance: RABEPRAZOLE SODIUM
     Indication: Immune thrombocytopenia
     Dosage: 10 MG, 1X/DAY
     Route: 048
     Dates: start: 2020
  7. FERROUS CITRATE [Concomitant]
     Active Substance: FERROUS CITRATE
     Indication: Immune thrombocytopenia
     Dosage: 50 MG, 1X/DAY
     Route: 048
     Dates: start: 2020
  8. SULFAMETHOXAZOLE\TRIMETHOPRIM [Concomitant]
     Active Substance: SULFAMETHOXAZOLE\TRIMETHOPRIM
     Indication: Immune thrombocytopenia
     Dosage: 1 TABLET, 1X/DAY
     Route: 048
     Dates: start: 2020
  9. PREDNISOLONE ACETATE [Concomitant]
     Active Substance: PREDNISOLONE ACETATE
     Indication: Immune thrombocytopenia
     Dosage: 5 MG, 1X/DAY
     Route: 048
     Dates: start: 2020
  10. CALCIUM CARBONATE [Concomitant]
     Active Substance: CALCIUM CARBONATE
     Indication: Immune thrombocytopenia
     Dosage: 500 MG, 3X/DAY
     Route: 048
     Dates: start: 2020
  11. MIYA-BM [Concomitant]
     Active Substance: CLOSTRIDIUM BUTYRICUM SPORES STRAIN M-55
     Indication: Immune thrombocytopenia
     Dosage: 1 TABLET, 3X/DAY
     Route: 048
     Dates: start: 2020
  12. METHYLCOBALAMIN [Concomitant]
     Active Substance: METHYLCOBALAMIN
     Indication: Hypoaesthesia
     Dosage: 1 TABLET, 3X/DAY
     Dates: start: 202104
  13. ELTROMBOPAG [Concomitant]
     Active Substance: ELTROMBOPAG
     Indication: Immune thrombocytopenia
     Route: 048

REACTIONS (3)
  - Chronic kidney disease [Unknown]
  - Neoplasm progression [Recovering/Resolving]
  - Off label use [Unknown]

NARRATIVE: CASE EVENT DATE: 20220323
